FAERS Safety Report 20335156 (Version 1)
Quarter: 2022Q1

REPORT INFORMATION
  Report Type: Report from Study
  Country: ES (occurrence: ES)
  Receive Date: 20220114
  Receipt Date: 20220114
  Transmission Date: 20220424
  Serious: Yes (Other)
  Sender: FDA-Public Use
  Company Number: ES-ABBVIE-22K-144-4234480-00

PATIENT
  Sex: Female

DRUGS (1)
  1. VALPROATE SODIUM [Suspect]
     Active Substance: VALPROATE SODIUM
     Indication: Epilepsy
     Route: 065

REACTIONS (5)
  - Abortion induced [Unknown]
  - Maternal exposure during pregnancy [Unknown]
  - Weight increased [Unknown]
  - Postural tremor [Unknown]
  - Action tremor [Unknown]
